FAERS Safety Report 6881304-X (Version None)
Quarter: 2010Q2

REPORT INFORMATION
  Report Type: 
  Country: None (occurrence: None)
  Receive Date: 20100630
  Receipt Date: 20090207
  Transmission Date: 20101027
  Serious: No
  Sender: FDA-Public Use
  Company Number: 2009-01031

PATIENT
  Age: 27 Year
  Sex: Female
  Weight: 54.4316 kg

DRUGS (1)
  1. ZICAM COLD REMEDY GEL SWABS [Suspect]
     Dosage: 3-4 DOSES

REACTIONS (1)
  - ANOSMIA [None]
